FAERS Safety Report 4627814-7 (Version None)
Quarter: 2005Q2

REPORT INFORMATION
  Report Type: 
  Country: None (occurrence: None)
  Receive Date: 20050404
  Receipt Date: 20050404
  Transmission Date: 20051028
  Serious: Yes (Other)
  Sender: FDA-Public Use
  Company Number: None

PATIENT
  Age: 54 Year
  Sex: Female
  Weight: 77.1115 kg

DRUGS (6)
  1. METRONIDAZOLE [Suspect]
     Indication: POUCHITIS
     Dosage: 500 MG PO DAILY
     Route: 048
  2. L-THYROXINE [Concomitant]
  3. ADVAIR DISKUS 100/50 [Concomitant]
  4. ALLEGRA [Concomitant]
  5. CENESTIN [Concomitant]
  6. PROMETRIUM [Concomitant]

REACTIONS (2)
  - BODY TEMPERATURE DECREASED [None]
  - CHILLS [None]
